FAERS Safety Report 12596601 (Version 9)
Quarter: 2017Q1

REPORT INFORMATION
  Report Type: Report from Study
  Country: JP (occurrence: JP)
  Receive Date: 20160727
  Receipt Date: 20170131
  Transmission Date: 20170428
  Serious: Yes (Hospitalization)
  Sender: FDA-Public Use
  Company Number: JP-ROCHE-1801219

PATIENT
  Age: 70 Year
  Sex: Male
  Weight: 61.35 kg

DRUGS (29)
  1. ALOXI [Concomitant]
     Active Substance: PALONOSETRON HYDROCHLORIDE
     Route: 065
     Dates: start: 20160816, end: 20160816
  2. METOCLOPRAMIDE. [Concomitant]
     Active Substance: METOCLOPRAMIDE
     Route: 065
     Dates: start: 20160909, end: 20160909
  3. DOMPERIDONE [Concomitant]
     Active Substance: DOMPERIDONE
     Indication: NAUSEA
     Route: 065
     Dates: start: 20160915, end: 20160921
  4. LOXOPROFEN [Concomitant]
     Active Substance: LOXOPROFEN
     Indication: MALAISE
  5. GASTER [Concomitant]
     Active Substance: FAMOTIDINE
     Route: 065
     Dates: start: 20160816, end: 20160816
  6. LEVOFLOXACIN. [Concomitant]
     Active Substance: LEVOFLOXACIN
     Indication: PYREXIA
     Route: 065
     Dates: start: 20160829, end: 20160902
  7. LOPERAMIDE [Concomitant]
     Active Substance: LOPERAMIDE
     Route: 065
     Dates: start: 20161001, end: 20161016
  8. NAUZELIN [Concomitant]
     Active Substance: DOMPERIDONE
     Indication: NAUSEA
     Route: 065
     Dates: start: 20160920, end: 20160920
  9. CARBOPLATIN. [Suspect]
     Active Substance: CARBOPLATIN
     Indication: NON-SMALL CELL LUNG CANCER
     Dosage: THE MOST RECENT DOSE OF CARBOPLATIN 493 MG PRIOR TO THE FIRST EPISODE OF RIGHT PLEURITIS ONSET WAS O
     Route: 042
     Dates: start: 20160523
  10. TALION (JAPAN) [Concomitant]
     Active Substance: BEPOTASTINE
     Indication: RASH
     Route: 065
     Dates: start: 20160909, end: 20160910
  11. ENTERONON-R [Concomitant]
     Active Substance: PROBIOTICS NOS
     Indication: NAUSEA
     Route: 065
     Dates: start: 20160930
  12. ATEZOLIZUMAB [Suspect]
     Active Substance: ATEZOLIZUMAB
     Indication: NON-SMALL CELL LUNG CANCER
     Dosage: THE MOST RECENT DOSE OF ATEZOLIZUMAB 1200 MG PRIOR TO THE FIRST EPISODE OF RIGHT PLEURITIS ONSET WAS
     Route: 042
     Dates: start: 20160523
  13. AMLODIN [Concomitant]
     Active Substance: AMLODIPINE BESYLATE
     Indication: HYPERTENSION
     Route: 065
     Dates: start: 2009
  14. SANCOBA [Concomitant]
     Active Substance: CYANOCOBALAMIN
     Indication: ASTHENOPIA
     Route: 065
     Dates: start: 20160616
  15. MAGMITT [Concomitant]
     Active Substance: MAGNESIUM OXIDE
     Indication: CONSTIPATION
     Route: 065
     Dates: start: 20160926, end: 20160930
  16. PACLITAXEL. [Suspect]
     Active Substance: PACLITAXEL
     Indication: NON-SMALL CELL LUNG CANCER
     Dosage: THE MOST RECENT DOSE OF PACLITAXEL 338 MG PRIOR TO THE FIRST EPISODE OF RIGHT PLEURITIS ONSET WAS ON
     Route: 042
     Dates: start: 20160523
  17. GASTER [Concomitant]
     Active Substance: FAMOTIDINE
     Indication: PREMEDICATION
     Route: 065
     Dates: start: 20160705, end: 20160705
  18. ALOXI [Concomitant]
     Active Substance: PALONOSETRON HYDROCHLORIDE
     Indication: PREMEDICATION
     Route: 065
     Dates: start: 20160705, end: 20160705
  19. LOPERAMIDE [Concomitant]
     Active Substance: LOPERAMIDE
     Route: 065
     Dates: start: 20161001, end: 20161016
  20. BIOLACTIS POWDER [Concomitant]
     Route: 065
     Dates: start: 20160930
  21. BEVACIZUMAB [Suspect]
     Active Substance: BEVACIZUMAB
     Indication: NON-SMALL CELL LUNG CANCER
     Dosage: THE MOST RECENT DOSE OF BEVACIZUMAB 948 MG PRIOR TO BOTH EPISODES OF RIGHT PLEURITIS ONSET WAS ON 05
     Route: 042
     Dates: start: 20160523
  22. ENTERONON-R [Concomitant]
     Active Substance: PROBIOTICS NOS
     Indication: DIARRHOEA
     Route: 065
     Dates: start: 20160920, end: 20160922
  23. BIOLACTIS POWDER [Concomitant]
     Route: 065
     Dates: start: 20160923, end: 20160929
  24. LOPERAMIDE [Concomitant]
     Active Substance: LOPERAMIDE
     Indication: DIARRHOEA
     Route: 065
     Dates: start: 20160909, end: 20160922
  25. LOXOPROFEN [Concomitant]
     Active Substance: LOXOPROFEN
     Indication: MYALGIA
     Route: 065
     Dates: start: 20160708
  26. RESTAMIN A KOWA [Concomitant]
     Indication: PREMEDICATION
     Route: 065
     Dates: start: 20160705, end: 20160705
  27. RESTAMIN A KOWA [Concomitant]
     Route: 065
     Dates: start: 20160816, end: 20160816
  28. MAGMITT [Concomitant]
     Active Substance: MAGNESIUM OXIDE
     Route: 065
     Dates: start: 20160524, end: 20160908
  29. KETOPROFEN. [Concomitant]
     Active Substance: KETOPROFEN
     Indication: MALAISE
     Route: 065
     Dates: start: 20160914, end: 20160914

REACTIONS (2)
  - Pleurisy [Recovered/Resolved]
  - Pneumonia [Recovered/Resolved]

NARRATIVE: CASE EVENT DATE: 20160725
